FAERS Safety Report 25465819 (Version 2)
Quarter: 2025Q2

REPORT INFORMATION
  Report Type: Spontaneous
  Country: DE (occurrence: DE)
  Receive Date: 20250623
  Receipt Date: 20250625
  Transmission Date: 20250716
  Serious: Yes (Hospitalization)
  Sender: BAUSCH AND LOMB
  Company Number: DE-SANDOZ-SDZ2025DE040555

PATIENT
  Sex: Male

DRUGS (6)
  1. DICLOFENAC [Suspect]
     Active Substance: DICLOFENAC
     Indication: Axial spondyloarthritis
     Route: 065
     Dates: end: 20240501
  2. ETORICOXIB [Suspect]
     Active Substance: ETORICOXIB
     Indication: Axial spondyloarthritis
     Route: 065
     Dates: start: 20170428, end: 20181120
  3. ETORICOXIB [Suspect]
     Active Substance: ETORICOXIB
     Route: 065
     Dates: start: 20170428, end: 20221207
  4. COSENTYX [Suspect]
     Active Substance: SECUKINUMAB
     Indication: Axial spondyloarthritis
     Route: 065
     Dates: start: 20180622, end: 20201025
  5. COSENTYX [Suspect]
     Active Substance: SECUKINUMAB
     Route: 065
     Dates: start: 20201207, end: 20220306
  6. COSENTYX [Suspect]
     Active Substance: SECUKINUMAB
     Route: 065
     Dates: start: 20220307

REACTIONS (2)
  - Osteoarthritis [Unknown]
  - Device related infection [Unknown]

NARRATIVE: CASE EVENT DATE: 20201125
